FAERS Safety Report 14109090 (Version 1)
Quarter: 2017Q4

REPORT INFORMATION
  Report Type: Spontaneous
  Country: US (occurrence: US)
  Receive Date: 20171019
  Receipt Date: 20171019
  Transmission Date: 20180321
  Serious: No
  Sender: FDA-Public Use
  Company Number: US-OTSUKA-2017_016831

PATIENT
  Sex: Female

DRUGS (2)
  1. REXULTI [Suspect]
     Active Substance: BREXPIPRAZOLE
     Indication: DEPRESSION
     Dosage: 3 MG, QD
     Route: 065
     Dates: start: 2017
  2. REXULTI [Suspect]
     Active Substance: BREXPIPRAZOLE
     Dosage: UNK
     Route: 065
     Dates: start: 2017

REACTIONS (4)
  - Drug dose omission [Unknown]
  - Hyperhidrosis [Unknown]
  - Insomnia [Unknown]
  - Sticky skin [Unknown]

NARRATIVE: CASE EVENT DATE: 2017
